FAERS Safety Report 19648980 (Version 2)
Quarter: 2021Q3

REPORT INFORMATION
  Report Type: Spontaneous
  Country: DE (occurrence: JP)
  Receive Date: 20210802
  Receipt Date: 20210817
  Transmission Date: 20211014
  Serious: Yes (Other)
  Sender: FDA-Public Use
  Company Number: JP-ELI_LILLY_AND_COMPANY-JP202107013121

PATIENT

DRUGS (1)
  1. ERBITUX [Suspect]
     Active Substance: CETUXIMAB
     Indication: COLON CANCER
     Dosage: UNK UNK, UNKNOWN
     Route: 041

REACTIONS (3)
  - Renal impairment [Not Recovered/Not Resolved]
  - Urinary tract obstruction [Unknown]
  - Metastasis [Unknown]

NARRATIVE: CASE EVENT DATE: 2021
